FAERS Safety Report 15740129 (Version 1)
Quarter: 2018Q4

REPORT INFORMATION
  Report Type: Spontaneous
  Country: US (occurrence: US)
  Receive Date: 20181219
  Receipt Date: 20181219
  Transmission Date: 20190205
  Serious: No
  Sender: FDA-Public Use
  Company Number: None

PATIENT
  Age: 47 Year
  Sex: Male
  Weight: 72 kg

DRUGS (2)
  1. AZELASTINE HCL OPHTHALMIC SOLUTION [Suspect]
     Active Substance: AZELASTINE HYDROCHLORIDE
     Indication: SEASONAL ALLERGY
     Dosage: ?          QUANTITY:1 DROP(S);?
     Route: 047
     Dates: start: 20181218, end: 20181218
  2. AZELASTINE HCL OPHTHALMIC SOLUTION [Suspect]
     Active Substance: AZELASTINE HYDROCHLORIDE
     Indication: EYE PRURITUS
     Dosage: ?          QUANTITY:1 DROP(S);?
     Route: 047
     Dates: start: 20181218, end: 20181218

REACTIONS (3)
  - Eye pruritus [None]
  - Eye swelling [None]
  - Eye pain [None]

NARRATIVE: CASE EVENT DATE: 20181219
